FAERS Safety Report 8776684 (Version 2)
Quarter: 2013Q1

REPORT INFORMATION
  Report Type: Spontaneous
  Country: US (occurrence: US)
  Receive Date: 20120910
  Receipt Date: 20130110
  Transmission Date: 20140127
  Serious: No
  Sender: FDA-Public Use
  Company Number: US-009507513-1209USA001280

PATIENT
  Age: 83 Year
  Sex: Male

DRUGS (2)
  1. AZASITE [Suspect]
     Indication: OCULAR DISCOMFORT
     Dosage: 2 GTT, BID
     Route: 047
     Dates: start: 20120815, end: 20120816
  2. AZASITE [Suspect]
     Dosage: 2 GTT, PRN
     Dates: start: 20120817, end: 201208

REACTIONS (4)
  - Eye irritation [Recovered/Resolved]
  - Lacrimation increased [Recovered/Resolved]
  - Swelling face [Recovered/Resolved]
  - Dizziness [Recovered/Resolved]
